FAERS Safety Report 14676298 (Version 2)
Quarter: 2018Q2

REPORT INFORMATION
  Report Type: Report from Study
  Country: US (occurrence: US)
  Receive Date: 20180323
  Receipt Date: 20180518
  Transmission Date: 20180711
  Serious: No
  Sender: FDA-Public Use
  Company Number: PHEH2018US011380

PATIENT
  Sex: Male

DRUGS (2)
  1. COSENTYX [Suspect]
     Active Substance: SECUKINUMAB
     Dosage: 300 MG, QMO
     Route: 058
  2. COSENTYX [Suspect]
     Active Substance: SECUKINUMAB
     Indication: PRODUCT USED FOR UNKNOWN INDICATION
     Dosage: 300 MG, QW
     Route: 058

REACTIONS (9)
  - Abdominal discomfort [Unknown]
  - Fatigue [Unknown]
  - Rhinorrhoea [Unknown]
  - Nasal congestion [Unknown]
  - Synovial cyst [Unknown]
  - Skin plaque [Recovering/Resolving]
  - Upper respiratory tract infection [Unknown]
  - Diarrhoea [Unknown]
  - Psoriasis [Unknown]
